FAERS Safety Report 18500106 (Version 1)
Quarter: 2020Q4

REPORT INFORMATION
  Report Type: Spontaneous
  Country: US (occurrence: US)
  Receive Date: 20201113
  Receipt Date: 20201113
  Transmission Date: 20210114
  Serious: No
  Sender: FDA-Public Use
  Company Number: US-GLAXOSMITHKLINE-US2020AMR219476

PATIENT
  Age: 74 Year
  Sex: Male

DRUGS (6)
  1. FLOMAX [Suspect]
     Active Substance: TAMSULOSIN HYDROCHLORIDE
     Indication: PRODUCT USED FOR UNKNOWN INDICATION
     Dosage: UNK
  2. MYRBETRIC [Suspect]
     Active Substance: MIRABEGRON
     Dosage: 50 MG
     Route: 048
     Dates: start: 20200925
  3. AVODART [Suspect]
     Active Substance: DUTASTERIDE
     Indication: PRODUCT USED FOR UNKNOWN INDICATION
     Dosage: UNK
  4. LANTUS [Concomitant]
     Active Substance: INSULIN GLARGINE
     Indication: DIABETES MELLITUS
     Dosage: UNK
  5. LISINOPRIL. [Concomitant]
     Active Substance: LISINOPRIL
     Indication: DIABETES MELLITUS
     Dosage: UNK
  6. MYRBETRIC [Suspect]
     Active Substance: MIRABEGRON
     Indication: PRODUCT USED FOR UNKNOWN INDICATION
     Dosage: 25 MG, QD
     Route: 048
     Dates: start: 20200902, end: 20200924

REACTIONS (4)
  - Dizziness [Recovered/Resolved]
  - Nocturia [Recovered/Resolved]
  - Blood glucose abnormal [Recovered/Resolved]
  - Urinary incontinence [Recovered/Resolved]

NARRATIVE: CASE EVENT DATE: 202009
